FAERS Safety Report 19255589 (Version 2)
Quarter: 2025Q3

REPORT INFORMATION
  Report Type: Spontaneous
  Country: EU (occurrence: EU)
  Receive Date: 20210514
  Receipt Date: 20250724
  Transmission Date: 20251021
  Serious: Yes (Hospitalization, Congenital Anomaly, Other)
  Sender: AUROBINDO
  Company Number: EU-ORION CORPORATION ORION PHARMA-MIRZ2021-0005

PATIENT

DRUGS (2)
  1. MIRTAZAPINE [Suspect]
     Active Substance: MIRTAZAPINE
     Indication: Decreased appetite
     Route: 064
  2. METOPROLOL [Suspect]
     Active Substance: METOPROLOL
     Indication: Blood pressure measurement
     Route: 065

REACTIONS (9)
  - Bronchopulmonary dysplasia [Unknown]
  - Congenital inguinal hernia [Unknown]
  - Foetal exposure during pregnancy [Unknown]
  - Low birth weight baby [Unknown]
  - Hypotension [Unknown]
  - Premature baby [Unknown]
  - Jaundice [Unknown]
  - Anaemia [Unknown]
  - Hyponatraemia [Unknown]
